FAERS Safety Report 10035969 (Version 2)
Quarter: 2014Q2

REPORT INFORMATION
  Report Type: Spontaneous
  Country: DE (occurrence: DE)
  Receive Date: 20140325
  Receipt Date: 20140429
  Transmission Date: 20141212
  Serious: Yes (Disabling, Other)
  Sender: FDA-Public Use
  Company Number: DE-PFIZER INC-2014081759

PATIENT
  Age: 47 Year
  Sex: Male

DRUGS (8)
  1. INSPRA [Suspect]
     Indication: CONGESTIVE CARDIOMYOPATHY
     Dosage: UNK
     Route: 048
  2. INSPRA [Suspect]
     Indication: HYPERTENSION
  3. RAMIPRIL [Concomitant]
     Indication: CONGESTIVE CARDIOMYOPATHY
     Dosage: UNK
     Route: 048
  4. RAMIPRIL [Concomitant]
     Indication: HYPERTENSION
  5. METOPROLOL [Concomitant]
     Indication: CONGESTIVE CARDIOMYOPATHY
     Dosage: UNK
     Route: 048
  6. METOPROLOL [Concomitant]
     Indication: HYPERTENSION
  7. AMLODIPINE [Concomitant]
     Indication: CONGESTIVE CARDIOMYOPATHY
     Dosage: UNK
     Route: 048
  8. AMLODIPINE [Concomitant]
     Indication: HYPERTENSION

REACTIONS (1)
  - Breast cancer male [Unknown]
